FAERS Safety Report 8806762 (Version 1)
Quarter: 2012Q4

REPORT INFORMATION
  Report Type: 
  Country: US (occurrence: US)
  Receive Date: 20120925
  Receipt Date: 20120925
  Transmission Date: 20130627
  Serious: Yes (Death)
  Sender: FDA-Public Use
  Company Number: US-ACTELION-A-US2012-71355

PATIENT
  Age: 74 Year
  Sex: Female

DRUGS (4)
  1. VELETRI [Suspect]
     Indication: PULMONARY ARTERIAL HYPERTENSION
     Dosage: 10 ng/kg, per min
     Route: 042
     Dates: start: 20110819, end: 20120904
  2. TRACLEER [Suspect]
     Indication: PULMONARY ARTERIAL HYPERTENSION
     Dosage: UNK
     Route: 048
     Dates: end: 201208
  3. ADCIRCA [Concomitant]
  4. ASPIRIN [Concomitant]

REACTIONS (2)
  - Pulmonary arterial hypertension [Fatal]
  - Interstitial lung disease [Fatal]
